FAERS Safety Report 6503624-0 (Version None)
Quarter: 2009Q4

REPORT INFORMATION
  Report Type: 
  Country: None (occurrence: None)
  Receive Date: 20091217
  Receipt Date: 20091208
  Transmission Date: 20100525
  Serious: Yes (Hospitalization, Other)
  Sender: FDA-Public Use
  Company Number: US-PFIZER INC-2009274349

PATIENT
  Sex: Female

DRUGS (19)
  1. REVATIO [Suspect]
     Indication: PULMONARY HYPERTENSION
     Dosage: 40 MG, 3X/DAY
     Dates: start: 20080211
  2. XANAX [Concomitant]
     Dosage: 0.5 MG, 3X/DAY
  3. ACETYLSALICYLIC ACID [Concomitant]
     Indication: CORONARY ARTERY DISEASE
     Dosage: 81 MG, 1X/DAY
  4. LIPITOR [Concomitant]
     Dosage: 80 MG, 1X/DAY
  5. BUMEX [Concomitant]
     Dosage: 2 MG, 2X/DAY
  6. COREG [Concomitant]
     Dosage: 25 MG, 2X/DAY
  7. LEXAPRO [Concomitant]
     Dosage: 20 MG, 1X/DAY
  8. ROBINUL [Concomitant]
     Indication: IRRITABLE BOWEL SYNDROME
     Dosage: 2 MG, 2X/DAY
  9. SLOW-MAG [Concomitant]
     Dosage: 64 MG, 2X/DAY
  10. INSULIN [Concomitant]
     Dosage: UNK
  11. CENTRUM SILVER [Concomitant]
     Dosage: 1 DAILY
  12. PROTONIX [Concomitant]
     Dosage: 40 MG, 1X/DAY
  13. PENTOXIFYLLINE [Concomitant]
     Dosage: 400 MG, 3X/DAY
  14. POTASSIUM [Concomitant]
     Dosage: 40 MEQ, 2X/DAY
  15. WARFARIN [Concomitant]
     Dosage: 5 MG, 1X/DAY
     Dates: end: 20091101
  16. FLONASE [Concomitant]
  17. COZAAR [Concomitant]
     Dosage: UNK
     Dates: end: 20091101
  18. ZETIA [Concomitant]
     Dosage: 10 MG, 1X/DAY
  19. PLAVIX [Concomitant]

REACTIONS (8)
  - BRONCHITIS [None]
  - CARDIAC FAILURE CONGESTIVE [None]
  - GASTRITIS [None]
  - GASTROINTESTINAL HAEMORRHAGE [None]
  - HAEMOGLOBIN DECREASED [None]
  - OEDEMA PERIPHERAL [None]
  - PNEUMONIA [None]
  - WEIGHT DECREASED [None]
